FAERS Safety Report 8340942-8 (Version None)
Quarter: 2012Q2

REPORT INFORMATION
  Report Type: 
  Country: None (occurrence: None)
  Receive Date: 20120507
  Receipt Date: 20120501
  Transmission Date: 20120825
  Serious: Yes (Hospitalization)
  Sender: FDA-Public Use
  Company Number: US-CELGENEUS-163-20785-12041645

PATIENT
  Sex: Male

DRUGS (4)
  1. THALOMID [Suspect]
     Dosage: 100 MILLIGRAM
     Route: 048
     Dates: start: 20110801
  2. THALOMID [Suspect]
     Indication: MULTIPLE MYELOMA
     Dosage: 200 MILLIGRAM
     Route: 048
     Dates: start: 20081101
  3. THALOMID [Suspect]
     Dosage: 100-200MG
     Route: 048
     Dates: start: 20091001
  4. THALOMID [Suspect]
     Dosage: 100-200MG
     Route: 048
     Dates: start: 20100401

REACTIONS (2)
  - MYOCARDIAL INFARCTION [None]
  - CARDIAC DISORDER [None]
